FAERS Safety Report 16928202 (Version 1)
Quarter: 2019Q4

REPORT INFORMATION
  Report Type: Spontaneous
  Country: PT (occurrence: PT)
  Receive Date: 20191017
  Receipt Date: 20191017
  Transmission Date: 20200122
  Serious: Yes (Death)
  Sender: FDA-Public Use
  Company Number: PT-BIOGEN-2019BI00795618

PATIENT
  Age: 13 Month
  Sex: Female

DRUGS (3)
  1. SPINRAZA [Suspect]
     Active Substance: NUSINERSEN
     Dosage: DAY 63 (4TH LOADING DOSE)
     Route: 037
  2. SPINRAZA [Suspect]
     Active Substance: NUSINERSEN
     Indication: SPINAL MUSCULAR ATROPHY
     Dosage: DAYS 0, 14, 28 (1ST THREE LOADING DOSE)
     Route: 037
     Dates: start: 201902
  3. SPINRAZA [Suspect]
     Active Substance: NUSINERSEN
     Dosage: 6TH MONTH (MAINTENANCE DOSE)
     Route: 037

REACTIONS (1)
  - Death [Fatal]

NARRATIVE: CASE EVENT DATE: 20191009
